FAERS Safety Report 22245977 (Version 1)
Quarter: 2023Q2

REPORT INFORMATION
  Report Type: Spontaneous
  Country: US (occurrence: US)
  Receive Date: 20230424
  Receipt Date: 20230424
  Transmission Date: 20230722
  Serious: Yes (Other)
  Sender: FDA-Public Use
  Company Number: US-009507513-2304USA008086

PATIENT
  Age: 77 Year
  Sex: Male

DRUGS (1)
  1. NOXAFIL [Suspect]
     Active Substance: POSACONAZOLE
     Indication: Diffuse large B-cell lymphoma
     Dosage: 300MG EVERY MORNING WITH BREAKFAST, QD
     Route: 048
     Dates: start: 20230417, end: 20230419

REACTIONS (3)
  - Hepatic function abnormal [Unknown]
  - Product use in unapproved indication [Unknown]
  - Incorrect dose administered [Unknown]

NARRATIVE: CASE EVENT DATE: 20230417
